FAERS Safety Report 15294256 (Version 11)
Quarter: 2021Q3

REPORT INFORMATION
  Report Type: Report from Study
  Country: US (occurrence: US)
  Receive Date: 20180820
  Receipt Date: 20210826
  Transmission Date: 20211014
  Serious: Yes (Hospitalization, Other)
  Sender: FDA-Public Use
  Company Number: US-ACADIA PHARMACEUTICALS INC.-ACA-2018-009027

PATIENT
  Age: 73 Year
  Sex: Male

DRUGS (31)
  1. NUPLAZID [Suspect]
     Active Substance: PIMAVANSERIN TARTRATE
     Dosage: 34 MG, QD
     Route: 048
     Dates: start: 20190801, end: 2019
  2. NUPLAZID [Interacting]
     Active Substance: PIMAVANSERIN TARTRATE
     Indication: PARKINSON^S DISEASE PSYCHOSIS
     Dosage: 34 MG, QD
     Route: 048
     Dates: start: 20180613, end: 2018
  3. APOMORPHINE [Concomitant]
     Active Substance: APOMORPHINE
  4. ROPINIROLE. [Concomitant]
     Active Substance: ROPINIROLE
  5. NUPLAZID [Interacting]
     Active Substance: PIMAVANSERIN TARTRATE
     Indication: DELUSION
     Dosage: 17 MG, QD
     Route: 065
     Dates: start: 201805
  6. APOKYN [Concomitant]
     Active Substance: APOMORPHINE HYDROCHLORIDE
     Dosage: UNK
     Route: 065
  7. ROPINIROLE HCL [Concomitant]
     Active Substance: ROPINIROLE HYDROCHLORIDE
     Route: 065
  8. VESICARE [Concomitant]
     Active Substance: SOLIFENACIN SUCCINATE
     Route: 065
  9. ENTACAPONE. [Concomitant]
     Active Substance: ENTACAPONE
  10. VITAMIN C [Concomitant]
     Active Substance: ASCORBIC ACID
  11. NUPLAZID [Interacting]
     Active Substance: PIMAVANSERIN TARTRATE
     Indication: HALLUCINATION
     Dosage: 34 MG, QD
     Route: 048
     Dates: start: 20170801
  12. TAMSULOSIN [Concomitant]
     Active Substance: TAMSULOSIN
  13. NUPLAZID [Suspect]
     Active Substance: PIMAVANSERIN TARTRATE
     Indication: PARKINSON^S DISEASE
     Dosage: 34 MG, QD
     Route: 048
     Dates: start: 2019, end: 2019
  14. VITAMIN D3 [Concomitant]
     Active Substance: CHOLECALCIFEROL
  15. CARBIDOPA. [Concomitant]
     Active Substance: CARBIDOPA
  16. ESCITALOPRAM [Concomitant]
     Active Substance: ESCITALOPRAM OXALATE
  17. LISINOPRIL. [Concomitant]
     Active Substance: LISINOPRIL
  18. METFORMIN [Concomitant]
     Active Substance: METFORMIN HYDROCHLORIDE
  19. ALPRAZOLAM. [Concomitant]
     Active Substance: ALPRAZOLAM
     Route: 065
  20. HUMULIN NOS [Concomitant]
     Active Substance: INSULIN HUMAN
  21. MECLIZINE [Concomitant]
     Active Substance: MECLIZINE HYDROCHLORIDE
  22. OXYBUTYNIN. [Concomitant]
     Active Substance: OXYBUTYNIN CHLORIDE
  23. NUPLAZID [Interacting]
     Active Substance: PIMAVANSERIN TARTRATE
     Dosage: 17 MG, QD
     Route: 048
     Dates: start: 201902, end: 2019
  24. BYSTOLIC [Concomitant]
     Active Substance: NEBIVOLOL HYDROCHLORIDE
     Route: 065
  25. PROAIR HFA [Concomitant]
     Active Substance: ALBUTEROL SULFATE
     Route: 065
  26. RYTARY [Concomitant]
     Active Substance: CARBIDOPA\LEVODOPA
     Route: 065
  27. HUMALOG MIX50/50 [Concomitant]
     Active Substance: INSULIN LISPRO
     Route: 065
  28. AMANTADINE. [Concomitant]
     Active Substance: AMANTADINE HYDROCHLORIDE
  29. NUPLAZID [Suspect]
     Active Substance: PIMAVANSERIN TARTRATE
     Dosage: 34 MG, QD, NOT TAKING NUPLAZID EVERY DAY AS PRESCRIBED
     Route: 048
     Dates: start: 2019, end: 2019
  30. NUPLAZID [Suspect]
     Active Substance: PIMAVANSERIN TARTRATE
     Dosage: 34 MG, QD
     Route: 048
     Dates: start: 20210520
  31. LASIX [Concomitant]
     Active Substance: FUROSEMIDE

REACTIONS (13)
  - Localised infection [Not Recovered/Not Resolved]
  - Drug interaction [Unknown]
  - Hallucination [Recovered/Resolved]
  - Malaise [Unknown]
  - Asthenia [Unknown]
  - Fatigue [Unknown]
  - Underdose [Recovered/Resolved]
  - Hallucination [Not Recovered/Not Resolved]
  - Staphylococcal infection [Unknown]
  - Memory impairment [Unknown]
  - Sepsis [Not Recovered/Not Resolved]
  - Post procedural sepsis [Unknown]
  - Intentional dose omission [Recovered/Resolved]

NARRATIVE: CASE EVENT DATE: 2018
